FAERS Safety Report 9148574 (Version 1)
Quarter: 2013Q1

REPORT INFORMATION
  Report Type: Spontaneous
  Country: ES (occurrence: ES)
  Receive Date: 20130308
  Receipt Date: 20130308
  Transmission Date: 20140127
  Serious: Yes (Hospitalization)
  Sender: FDA-Public Use
  Company Number: ES-JNJFOC-20130214355

PATIENT
  Age: 68 Year
  Sex: Female

DRUGS (6)
  1. DUROGESIC [Suspect]
     Indication: PRODUCT USED FOR UNKNOWN INDICATION
     Dosage: 8.4 MG
     Route: 062
     Dates: start: 20120811, end: 20120822
  2. SPIRONOLACTONE [Interacting]
     Indication: ASCITES
     Route: 065
     Dates: start: 201208, end: 20120822
  3. FUROSEMIDE [Interacting]
     Indication: ASCITES
     Route: 065
     Dates: start: 201208, end: 20120822
  4. PREDNISONE [Concomitant]
     Indication: CHRONIC HEPATITIS
     Route: 065
     Dates: start: 201206
  5. ACETYLSALICYLIC ACID [Concomitant]
     Indication: ARTERIAL STENOSIS
     Route: 065
     Dates: start: 201202, end: 20120822
  6. ATORVASTATIN [Concomitant]
     Indication: HYPERLIPIDAEMIA
     Route: 065
     Dates: start: 201202

REACTIONS (3)
  - Renal impairment [Unknown]
  - Drug interaction [Unknown]
  - Hepatic encephalopathy [Recovered/Resolved]
